FAERS Safety Report 9903381 (Version 2)
Quarter: 2014Q1

REPORT INFORMATION
  Report Type: Spontaneous
  Country: US (occurrence: US)
  Receive Date: 20140217
  Receipt Date: 20140217
  Transmission Date: 20141002
  Serious: Yes (Hospitalization)
  Sender: FDA-Public Use
  Company Number: US-GILEAD-2011-0047242

PATIENT
  Sex: Male

DRUGS (7)
  1. LETAIRIS [Suspect]
     Indication: PULMONARY HYPERTENSION
     Dosage: 5 MG, UNK
     Route: 048
     Dates: start: 20111004, end: 20111026
  2. REMODULIN [Concomitant]
  3. LASIX                              /00032601/ [Concomitant]
  4. REVATIO [Concomitant]
  5. WARFARIN [Concomitant]
  6. PAXIL [Concomitant]
  7. DIGOXIN [Concomitant]

REACTIONS (1)
  - Fluid retention [Unknown]
